FAERS Safety Report 16984745 (Version 2)
Quarter: 2019Q4

REPORT INFORMATION
  Report Type: Spontaneous
  Country: US (occurrence: US)
  Receive Date: 20191101
  Receipt Date: 20191107
  Transmission Date: 20200122
  Serious: No
  Sender: FDA-Public Use
  Company Number: US-PFIZER INC-2019472164

PATIENT
  Sex: Female

DRUGS (1)
  1. MEDROL [Suspect]
     Active Substance: METHYLPREDNISOLONE
     Dosage: 4 MG, DAILY (TAKE 4 MG A DAY AND BREAK IT UP INTO SMALLER DOSE, SMALLER AMOUNT BREAKFAST, LUNCH AND)

REACTIONS (3)
  - Feeling abnormal [Unknown]
  - Pain [Unknown]
  - Asthenia [Unknown]
